FAERS Safety Report 25522553 (Version 2)
Quarter: 2025Q3

REPORT INFORMATION
  Report Type: Spontaneous
  Country: US (occurrence: US)
  Receive Date: 20250707
  Receipt Date: 20250711
  Transmission Date: 20251021
  Serious: Yes (Other)
  Sender: CATALYST PHARMA
  Company Number: US-CATALYST PHARMACEUTICALS-US-CATA-25-00953

PATIENT
  Sex: Male
  Weight: 50.34 kg

DRUGS (5)
  1. AGAMREE [Suspect]
     Active Substance: VAMOROLONE
     Indication: Duchenne muscular dystrophy
     Dosage: 6.5 ML ONCE A DAY
     Route: 048
     Dates: start: 20240430
  2. AGAMREE [Suspect]
     Active Substance: VAMOROLONE
     Dosage: 5.5 ML ONCE A DAY
     Route: 048
     Dates: start: 20250617, end: 2025
  3. AGAMREE [Suspect]
     Active Substance: VAMOROLONE
     Route: 048
     Dates: start: 2025
  4. CLONIDINE [Concomitant]
     Active Substance: CLONIDINE
     Indication: Attention deficit hyperactivity disorder
     Dosage: 0.1 MG TWICE DAY
     Route: 065
  5. HALOPERIDOL [Concomitant]
     Active Substance: HALOPERIDOL
     Indication: Autism spectrum disorder
     Dosage: 2 MG THREE TIMES A DAY
     Route: 065

REACTIONS (4)
  - Hepatitis [Not Recovered/Not Resolved]
  - Peripheral swelling [Not Recovered/Not Resolved]
  - Swelling face [Not Recovered/Not Resolved]
  - Intentional product use issue [Unknown]

NARRATIVE: CASE EVENT DATE: 20250101
